FAERS Safety Report 5508687-7 (Version None)
Quarter: 2007Q4

REPORT INFORMATION
  Report Type: 
  Country: None (occurrence: None)
  Receive Date: 20071031
  Receipt Date: 20070724
  Transmission Date: 20080405
  Serious: No
  Sender: FDA-Public Use
  Company Number: 2006PV026354

PATIENT
  Age: 60 Year
  Sex: Male
  Weight: 140.6151 kg

DRUGS (11)
  1. SYMLIN [Suspect]
     Indication: TYPE 2 DIABETES MELLITUS
     Dosage: 120 MCG;BID;SC ; 60 MCG;QD;SC ; 30 MCG;QD;SC ; 15 MCG;QD;SC ; 120 MCG;TID;SC ; 60 MCG;TID;SC
     Route: 058
     Dates: start: 20061130, end: 20061130
  2. SYMLIN [Suspect]
     Indication: TYPE 2 DIABETES MELLITUS
     Dosage: 120 MCG;BID;SC ; 60 MCG;QD;SC ; 30 MCG;QD;SC ; 15 MCG;QD;SC ; 120 MCG;TID;SC ; 60 MCG;TID;SC
     Route: 058
     Dates: start: 20061201, end: 20061201
  3. SYMLIN [Suspect]
     Indication: TYPE 2 DIABETES MELLITUS
     Dosage: 120 MCG;BID;SC ; 60 MCG;QD;SC ; 30 MCG;QD;SC ; 15 MCG;QD;SC ; 120 MCG;TID;SC ; 60 MCG;TID;SC
     Route: 058
     Dates: start: 20061201, end: 20061201
  4. SYMLIN [Suspect]
     Indication: TYPE 2 DIABETES MELLITUS
     Dosage: 120 MCG;BID;SC ; 60 MCG;QD;SC ; 30 MCG;QD;SC ; 15 MCG;QD;SC ; 120 MCG;TID;SC ; 60 MCG;TID;SC
     Route: 058
     Dates: start: 20070318, end: 20070101
  5. SYMLIN [Suspect]
     Indication: TYPE 2 DIABETES MELLITUS
     Dosage: 120 MCG;BID;SC ; 60 MCG;QD;SC ; 30 MCG;QD;SC ; 15 MCG;QD;SC ; 120 MCG;TID;SC ; 60 MCG;TID;SC
     Route: 058
     Dates: start: 20070101, end: 20070401
  6. SYMLIN [Suspect]
     Indication: TYPE 2 DIABETES MELLITUS
     Dosage: 120 MCG;BID;SC ; 60 MCG;QD;SC ; 30 MCG;QD;SC ; 15 MCG;QD;SC ; 120 MCG;TID;SC ; 60 MCG;TID;SC
     Route: 058
     Dates: start: 20061203
  7. SYMLIN [Suspect]
  8. HUMALOG [Concomitant]
  9. LANTUS [Concomitant]
  10. METFORMIN HCL [Concomitant]
  11. BYETTA [Concomitant]

REACTIONS (1)
  - DRUG EFFECT DECREASED [None]
